FAERS Safety Report 14897686 (Version 1)
Quarter: 2018Q2

REPORT INFORMATION
  Report Type: Spontaneous
  Country: CN (occurrence: CN)
  Receive Date: 20180515
  Receipt Date: 20180515
  Transmission Date: 20180711
  Serious: Yes (Other)
  Sender: FDA-Public Use
  Company Number: CN-MYLANLABS-2018M1031214

PATIENT
  Age: 54 Year
  Sex: Female

DRUGS (2)
  1. METHOTREXATE. [Concomitant]
     Active Substance: METHOTREXATE
     Indication: CUTANEOUS LYMPHOMA
     Dosage: 5 G/M2;
     Route: 050
  2. METHOTREXATE. [Suspect]
     Active Substance: METHOTREXATE
     Indication: OCULAR LYMPHOMA
     Dosage: ABOUT 400MG/0.1ML, TWICE A WEEK FOR 4 WEEKS
     Route: 050

REACTIONS (2)
  - Ocular toxicity [Recovered/Resolved]
  - Corneal disorder [Recovered/Resolved]
